FAERS Safety Report 19283471 (Version 1)
Quarter: 2021Q2

REPORT INFORMATION
  Report Type: Spontaneous
  Country: IT (occurrence: IT)
  Receive Date: 20210521
  Receipt Date: 20210521
  Transmission Date: 20210717
  Serious: Yes (Hospitalization)
  Sender: FDA-Public Use
  Company Number: IT-AMGEN-ITASP2021074311

PATIENT
  Age: 58 Year
  Sex: Male
  Weight: 85 kg

DRUGS (5)
  1. DILATREND [Concomitant]
     Active Substance: CARVEDILOL
     Dosage: 3.13 MILLIGRAM
     Route: 048
     Dates: start: 20201110, end: 20210506
  2. OXALIPLATIN. [Suspect]
     Active Substance: OXALIPLATIN
     Indication: METASTASES TO LIVER
     Dosage: 170 MILLIGRAM, CYCLICAL
     Route: 042
     Dates: start: 20201110, end: 20210506
  3. MICARDIS [Concomitant]
     Active Substance: TELMISARTAN
     Dosage: 20 MILLIGRAM
     Route: 048
     Dates: start: 20201110, end: 20210506
  4. VECTIBIX [Suspect]
     Active Substance: PANITUMUMAB
     Indication: METASTASES TO LIVER
     Dosage: 400 MILLIGRAM, CYCLICAL
     Route: 042
     Dates: start: 20201110, end: 20210506
  5. COMIRNATY [Concomitant]
     Active Substance: TOZINAMERAN
     Indication: COVID-19 IMMUNISATION
     Dosage: 0.3 MILLILITER
     Route: 030
     Dates: start: 20210501, end: 20210501

REACTIONS (3)
  - Heart rate decreased [Unknown]
  - Labile blood pressure [Unknown]
  - Chest pain [Unknown]

NARRATIVE: CASE EVENT DATE: 20210506
